FAERS Safety Report 4781545-1 (Version None)
Quarter: 2005Q3

REPORT INFORMATION
  Report Type: 
  Country: None (occurrence: None)
  Receive Date: 20050928
  Receipt Date: 20050920
  Transmission Date: 20060218
  Serious: Yes (Hospitalization)
  Sender: FDA-Public Use
  Company Number: PHRM2005FR02524

PATIENT
  Age: 84 Year
  Sex: Male

DRUGS (6)
  1. TEGRETOL [Suspect]
     Dosage: 600 MG/DAY
     Route: 048
     Dates: end: 20050811
  2. DI-ANTALVIC [Suspect]
     Dosage: 6 CAPS/DAY
     Route: 048
     Dates: end: 20050811
  3. STILNOX [Concomitant]
     Indication: SLEEP DISORDER
     Dosage: 10 MG/DAY
     Route: 048
  4. PREVISCAN [Concomitant]
     Dosage: 20 MG/DAY
     Route: 048
  5. LASILIX [Concomitant]
     Dosage: 40 MG/DAY
     Route: 048
  6. CORDARONE [Concomitant]
     Indication: ATRIAL FIBRILLATION
     Dosage: 200 MG/DAY
     Route: 048

REACTIONS (5)
  - ANTICONVULSANT DRUG LEVEL ABOVE THERAPEUTIC [None]
  - DEPRESSED LEVEL OF CONSCIOUSNESS [None]
  - DRUG INTERACTION [None]
  - MOTOR DYSFUNCTION [None]
  - SOMNOLENCE [None]
